APPROVED DRUG PRODUCT: LOPERAMIDE HYDROCHLORIDE
Active Ingredient: LOPERAMIDE HYDROCHLORIDE
Strength: 2MG
Dosage Form/Route: CAPSULE;ORAL
Application: A220372 | Product #001
Applicant: AUROBINDO PHARMA LTD
Approved: Dec 29, 2025 | RLD: No | RS: No | Type: OTC